FAERS Safety Report 10612174 (Version 2)
Quarter: 2015Q1

REPORT INFORMATION
  Report Type: Report from Study
  Country: US (occurrence: US)
  Receive Date: 20141127
  Receipt Date: 20150120
  Transmission Date: 20150720
  Serious: Yes (Death, Hospitalization, Other)
  Sender: FDA-Public Use
  Company Number: US-AMGEN-USASL2014091383

PATIENT
  Age: 68 Year
  Sex: Female
  Weight: 42.18 kg

DRUGS (1)
  1. PROLIA [Suspect]
     Active Substance: DENOSUMAB
     Indication: OSTEOPOROSIS
     Dosage: 60 MG, Q6MO
     Route: 065
     Dates: start: 20120106

REACTIONS (4)
  - Anaemia [Fatal]
  - Cardiogenic shock [Fatal]
  - Gastrointestinal haemorrhage [Unknown]
  - Respiratory failure [Fatal]
